FAERS Safety Report 4484277-2 (Version None)
Quarter: 2004Q3

REPORT INFORMATION
  Report Type: 
  Country: None (occurrence: None)
  Receive Date: 20040921
  Receipt Date: 20040130
  Transmission Date: 20050211
  Serious: Yes (Hospitalization)
  Sender: FDA-Public Use
  Company Number: 163-20785-04020007

PATIENT
  Age: 64 Year
  Sex: Male
  Weight: 86.637 kg

DRUGS (5)
  1. THALOMID [Suspect]
     Indication: COLORECTAL CANCER METASTATIC
     Dosage: 400 MG, QD, ORAL; SEE IMAGE
     Route: 048
     Dates: start: 20040102, end: 20040108
  2. THALOMID [Suspect]
     Indication: COLORECTAL CANCER METASTATIC
     Dosage: 400 MG, QD, ORAL; SEE IMAGE
     Route: 048
     Dates: start: 20040109, end: 20040115
  3. THALOMID [Suspect]
     Indication: COLORECTAL CANCER METASTATIC
     Dosage: 400 MG, QD, ORAL; SEE IMAGE
     Route: 048
     Dates: start: 20040116, end: 20040122
  4. THALOMID [Suspect]
     Indication: COLORECTAL CANCER METASTATIC
     Dosage: 400 MG, QD, ORAL; SEE IMAGE
     Route: 048
     Dates: start: 20040123, end: 20040124
  5. XELODA [Suspect]
     Indication: COLORECTAL CANCER METASTATIC
     Dosage: BID 2 WEEKS ON, 1 WEEK OFF
     Dates: start: 20040102, end: 20040125

REACTIONS (3)
  - ABDOMINAL PAIN [None]
  - ASTHENIA [None]
  - DYSPNOEA [None]
